FAERS Safety Report 5933531-3 (Version None)
Quarter: 2008Q4

REPORT INFORMATION
  Report Type: 
  Country: None (occurrence: None)
  Receive Date: 20081023
  Receipt Date: 20060627
  Transmission Date: 20090506
  Serious: Yes (Other)
  Sender: FDA-Public Use
  Company Number: 2006AL002140

PATIENT
  Age: 55 Year
  Sex: Male

DRUGS (3)
  1. TRAMADOL HCL [Suspect]
     Indication: BACK PAIN
     Dosage: 100 MG; QID; PO
     Route: 048
     Dates: start: 20060508, end: 20060509
  2. ACETAMINOPHEN W/ CODEINE [Concomitant]
  3. PROZAC [Concomitant]

REACTIONS (2)
  - BLISTER [None]
  - HYPERHIDROSIS [None]
